FAERS Safety Report 21531561 (Version 1)
Quarter: 2022Q4

REPORT INFORMATION
  Report Type: Spontaneous
  Country: CN (occurrence: CN)
  Receive Date: 20221031
  Receipt Date: 20221031
  Transmission Date: 20230112
  Serious: Yes (Life-Threatening, Other)
  Sender: FDA-Public Use
  Company Number: CN-MLMSERVICE-20221018-3865403-1

PATIENT
  Age: 42 Year
  Sex: Male

DRUGS (25)
  1. ABRAXANE [Suspect]
     Active Substance: PACLITAXEL
     Indication: Sarcomatoid carcinoma of the lung
     Route: 065
     Dates: start: 20200616
  2. ABRAXANE [Suspect]
     Active Substance: PACLITAXEL
     Route: 065
     Dates: start: 20200714
  3. ABRAXANE [Suspect]
     Active Substance: PACLITAXEL
     Dosage: 150 MG D1-D8
     Route: 065
     Dates: start: 20200909
  4. ABRAXANE [Suspect]
     Active Substance: PACLITAXEL
     Dosage: 150 MG D1-D8
     Route: 065
     Dates: start: 20200714
  5. ABRAXANE [Suspect]
     Active Substance: PACLITAXEL
     Dosage: 150 MG D1-D8
     Route: 065
     Dates: start: 20200810
  6. ABRAXANE [Suspect]
     Active Substance: PACLITAXEL
     Dosage: 150 MG D1-D8
     Route: 065
     Dates: start: 20201224
  7. ABRAXANE [Suspect]
     Active Substance: PACLITAXEL
     Dosage: 150 MG D1-D8
     Route: 065
     Dates: start: 20201130
  8. ABRAXANE [Suspect]
     Active Substance: PACLITAXEL
     Dosage: 150 MG D1-D8
     Route: 065
     Dates: start: 20201104
  9. ABRAXANE [Suspect]
     Active Substance: PACLITAXEL
     Dosage: 150 MG D1-D8
     Route: 065
     Dates: start: 20201007, end: 20210125
  10. CISPLATIN [Suspect]
     Active Substance: CISPLATIN
     Indication: Sarcomatoid carcinoma of the lung
     Route: 065
     Dates: start: 20200616
  11. CISPLATIN [Suspect]
     Active Substance: CISPLATIN
     Dosage: 25MG D1-D2, D8-D9
     Route: 065
     Dates: start: 20201224
  12. CISPLATIN [Suspect]
     Active Substance: CISPLATIN
     Dosage: 25MG D1-D2, D8-D9
     Route: 065
     Dates: start: 20200810
  13. CISPLATIN [Suspect]
     Active Substance: CISPLATIN
     Dosage: 25MG D1-D2, D8-D9
     Route: 065
     Dates: start: 20200714
  14. CISPLATIN [Suspect]
     Active Substance: CISPLATIN
     Dosage: 25MG D1-D2, D8-D9
     Route: 065
     Dates: start: 20201104
  15. CISPLATIN [Suspect]
     Active Substance: CISPLATIN
     Dosage: 50 MG D1-D2
     Route: 065
     Dates: start: 20201007
  16. CISPLATIN [Suspect]
     Active Substance: CISPLATIN
     Dosage: 25MG D1-D2, D8-D9
     Route: 065
     Dates: start: 20201130
  17. CISPLATIN [Suspect]
     Active Substance: CISPLATIN
     Dosage: 25MG D1-D2, D8-D9
     Route: 065
     Dates: start: 20200714
  18. CISPLATIN [Suspect]
     Active Substance: CISPLATIN
     Dosage: 25MG D1-D2, D8-D9
     Route: 065
     Dates: start: 20200909, end: 20210125
  19. CATEQUENTINIB [Concomitant]
     Active Substance: CATEQUENTINIB
     Indication: Sarcomatoid carcinoma of the lung
     Dosage: 12 MG DAILY (DAYS 1-14)?12 MG PEROS (PO) QUARTER IN DIE (QD) DAYS 1-14, 3WEEKS USING A (Q3W)
     Route: 048
     Dates: start: 20200711
  20. CATEQUENTINIB [Concomitant]
     Active Substance: CATEQUENTINIB
     Dosage: 12 MG DAILY (DAYS 1-14)
     Route: 048
     Dates: start: 20201224
  21. CATEQUENTINIB [Concomitant]
     Active Substance: CATEQUENTINIB
     Dosage: 12 MG DAILY (DAYS 1-14)
     Route: 048
     Dates: start: 20200909
  22. CATEQUENTINIB [Concomitant]
     Active Substance: CATEQUENTINIB
     Dosage: 12 MG DAILY (DAYS 1-14)
     Route: 048
     Dates: start: 20201104
  23. CATEQUENTINIB [Concomitant]
     Active Substance: CATEQUENTINIB
     Dosage: 12 MG DAILY (DAYS 1-14)
     Route: 048
     Dates: start: 20200711
  24. CATEQUENTINIB [Concomitant]
     Active Substance: CATEQUENTINIB
     Dosage: 12 MG DAILY (DAYS 1-14)
     Route: 048
     Dates: start: 20201007
  25. CATEQUENTINIB [Concomitant]
     Active Substance: CATEQUENTINIB
     Dosage: 12 MG DAILY (DAYS 1-14)
     Route: 048
     Dates: start: 20200810

REACTIONS (5)
  - Vomiting [Unknown]
  - Myelosuppression [Unknown]
  - Fatigue [Unknown]
  - Decreased appetite [Unknown]
  - Intentional product use issue [Unknown]

NARRATIVE: CASE EVENT DATE: 20200101
